FAERS Safety Report 18003694 (Version 8)
Quarter: 2021Q1

REPORT INFORMATION
  Report Type: Spontaneous
  Country: US (occurrence: US)
  Receive Date: 20200710
  Receipt Date: 20210104
  Transmission Date: 20210419
  Serious: Yes (Other)
  Sender: FDA-Public Use
  Company Number: US-GLAXOSMITHKLINE-US2020AMR125278

PATIENT
  Sex: Female

DRUGS (6)
  1. ZEJULA [Suspect]
     Active Substance: NIRAPARIB
     Indication: OVARIAN CANCER
     Dosage: 200 MG, QD
     Dates: start: 202005
  2. ZEJULA [Suspect]
     Active Substance: NIRAPARIB
     Dosage: 200 MG, QD
     Route: 048
     Dates: start: 20200624
  3. ZEJULA [Suspect]
     Active Substance: NIRAPARIB
     Dosage: 100 MG, QD
     Route: 048
     Dates: start: 20200724, end: 20200831
  4. ZEJULA [Suspect]
     Active Substance: NIRAPARIB
     Dosage: 100 MG, QD
     Route: 048
  5. ZEJULA [Suspect]
     Active Substance: NIRAPARIB
     Dosage: 300 MG, QD
     Dates: start: 20200620
  6. ZEJULA [Suspect]
     Active Substance: NIRAPARIB
     Dosage: 100 MG, QD
     Route: 048
     Dates: start: 20200724, end: 20200831

REACTIONS (9)
  - Carbohydrate antigen 125 increased [Not Recovered/Not Resolved]
  - Joint swelling [Unknown]
  - Blood creatinine increased [Not Recovered/Not Resolved]
  - Dehydration [Unknown]
  - Musculoskeletal discomfort [Unknown]
  - Haemoglobin decreased [Unknown]
  - Nausea [Not Recovered/Not Resolved]
  - Thrombocytopenia [Recovered/Resolved]
  - Arthralgia [Unknown]
